APPROVED DRUG PRODUCT: ACTOPLUS MET
Active Ingredient: METFORMIN HYDROCHLORIDE; PIOGLITAZONE HYDROCHLORIDE
Strength: 850MG;EQ 15MG BASE
Dosage Form/Route: TABLET;ORAL
Application: N021842 | Product #002 | TE Code: AB
Applicant: TAKEDA PHARMACEUTICALS USA INC
Approved: Aug 29, 2005 | RLD: Yes | RS: Yes | Type: RX

PATENTS:
Patent 9101660 | Expires: Jan 22, 2027
Patent 9320714 | Expires: Feb 3, 2029